FAERS Safety Report 8268985-3 (Version None)
Quarter: 2012Q2

REPORT INFORMATION
  Report Type: 
  Country: None (occurrence: None)
  Receive Date: 20120409
  Receipt Date: 20120403
  Transmission Date: 20120825
  Serious: Yes (Life-Threatening)
  Sender: FDA-Public Use
  Company Number: IT-BAYER-2012-032632

PATIENT
  Age: 13 Year
  Sex: Female

DRUGS (4)
  1. ACETAMINOPHEN [Suspect]
     Indication: TOOTHACHE
     Dosage: DAILY DOSE 1 DF
     Route: 048
     Dates: start: 20120206, end: 20120206
  2. KETOPROFEN [Suspect]
     Indication: OROPHARYNGEAL PAIN
     Dosage: 40 MG, ONCE
     Route: 048
     Dates: start: 20120226, end: 20120226
  3. ASPIRIN [Suspect]
     Indication: TOOTHACHE
     Dosage: DAILY DOSE 1 DF
     Route: 048
     Dates: start: 20120201, end: 20120206
  4. DERMATOLOGICALS [Concomitant]
     Dosage: UNK
     Route: 061
     Dates: start: 20120224

REACTIONS (3)
  - TOXIC EPIDERMAL NECROLYSIS [None]
  - ERYTHEMA [None]
  - SKIN EXFOLIATION [None]
